FAERS Safety Report 11436245 (Version 1)
Quarter: 2015Q3

REPORT INFORMATION
  Report Type: Spontaneous
  Country: US (occurrence: US)
  Receive Date: 20150821
  Receipt Date: 20150821
  Transmission Date: 20151125
  Serious: No
  Sender: FDA-Public Use
  Company Number: US-ELI_LILLY_AND_COMPANY-US201403003477

PATIENT
  Age: 73 Year
  Sex: Male

DRUGS (5)
  1. CIALIS [Suspect]
     Active Substance: TADALAFIL
     Indication: ERECTILE DYSFUNCTION
     Dosage: 10 MG, PRN
  2. CIALIS [Suspect]
     Active Substance: TADALAFIL
     Indication: BENIGN PROSTATIC HYPERPLASIA
     Dosage: 5 MG, QD
     Dates: start: 201307
  3. FLOX-EX [Concomitant]
     Indication: BENIGN PROSTATIC HYPERPLASIA
     Dosage: UNK, QD
     Dates: start: 200802
  4. LIPITOR [Concomitant]
     Active Substance: ATORVASTATIN CALCIUM
     Dosage: 10 MG, UNK
  5. VIAGRA [Concomitant]
     Active Substance: SILDENAFIL CITRATE
     Indication: ERECTILE DYSFUNCTION
     Dosage: UNK
     Dates: start: 2002

REACTIONS (4)
  - Intentional product use issue [Unknown]
  - Headache [Unknown]
  - Wrong technique in product usage process [Unknown]
  - Medication error [Unknown]
